FAERS Safety Report 8299180-X (Version None)
Quarter: 2012Q2

REPORT INFORMATION
  Report Type: 
  Country: None (occurrence: None)
  Receive Date: 20120419
  Receipt Date: 20120404
  Transmission Date: 20120825
  Serious: Yes (Disabling)
  Sender: FDA-Public Use
  Company Number: US-ACTELION-A-NJ2011-58387

PATIENT

DRUGS (2)
  1. VENTAVIS [Suspect]
     Indication: PULMONARY ARTERIAL HYPERTENSION
     Dosage: UNK
     Route: 055
     Dates: start: 20110426
  2. REVATIO [Concomitant]

REACTIONS (3)
  - FEELING ABNORMAL [None]
  - ABDOMINAL DISCOMFORT [None]
  - PAIN IN EXTREMITY [None]
